FAERS Safety Report 9833069 (Version 1)
Quarter: 2014Q1

REPORT INFORMATION
  Report Type: Spontaneous
  Country: IT (occurrence: IT)
  Receive Date: 20140121
  Receipt Date: 20140121
  Transmission Date: 20141002
  Serious: Yes (Hospitalization)
  Sender: FDA-Public Use
  Company Number: PHHY2014IT005856

PATIENT
  Age: 95 Year
  Sex: Female

DRUGS (2)
  1. VOLTAREN [Suspect]
     Indication: PAIN
     Dosage: UNK UKN, PRN
     Route: 048
     Dates: end: 20131223
  2. CARDIOASPIRIN [Suspect]
     Dosage: 100 MG DAILY
     Route: 048
     Dates: end: 20131223

REACTIONS (4)
  - Gastrooesophageal reflux disease [Recovering/Resolving]
  - Melaena [Recovering/Resolving]
  - Duodenal ulcer [Recovering/Resolving]
  - Anaemia [Recovering/Resolving]
